FAERS Safety Report 7825869-X (Version None)
Quarter: 2011Q4

REPORT INFORMATION
  Report Type: 
  Country: None (occurrence: None)
  Receive Date: 20111019
  Receipt Date: 20111011
  Transmission Date: 20120403
  Serious: Yes (Other)
  Sender: FDA-Public Use
  Company Number: US-ROCHE-1004026

PATIENT
  Sex: Female

DRUGS (2)
  1. BONIVA [Suspect]
     Indication: OSTEOPOROSIS
     Dates: start: 20100501, end: 20101101
  2. FOSAMAX [Suspect]
     Indication: OSTEOPOROSIS
     Dates: start: 19990101, end: 20100401

REACTIONS (3)
  - EMOTIONAL DISTRESS [None]
  - BONE DISORDER [None]
  - FEMUR FRACTURE [None]
